FAERS Safety Report 7483500-X (Version None)
Quarter: 2011Q2

REPORT INFORMATION
  Report Type: 
  Country: None (occurrence: None)
  Receive Date: 20110513
  Receipt Date: 20110513
  Transmission Date: 20111010
  Serious: Yes (Hospitalization)
  Sender: FDA-Public Use
  Company Number: None

PATIENT
  Sex: Female
  Weight: 193.05 kg

DRUGS (6)
  1. LASIX [Concomitant]
  2. CRESTOR [Concomitant]
  3. ALBUTEROL SULFATE AUTOHALER [Concomitant]
  4. CARBOPLATIN [Suspect]
     Dosage: 647 MG
  5. TAXOL [Suspect]
     Dosage: 350 MG
  6. LOTREL [Concomitant]

REACTIONS (1)
  - DEEP VEIN THROMBOSIS [None]
